FAERS Safety Report 11703434 (Version 1)
Quarter: 2015Q4

REPORT INFORMATION
  Report Type: Spontaneous
  Country: US (occurrence: US)
  Receive Date: 20151105
  Receipt Date: 20151105
  Transmission Date: 20160304
  Serious: No
  Sender: FDA-Public Use
  Company Number: US-ANACOR-2015ANA00099

PATIENT
  Sex: Female
  Weight: 73.47 kg

DRUGS (3)
  1. KERYDIN [Suspect]
     Active Substance: TAVABOROLE
     Indication: ONYCHOMYCOSIS
     Dosage: UNK UNK, 1X/DAY
     Route: 061
     Dates: start: 201505, end: 201505
  2. AMLODIPINE [Concomitant]
     Active Substance: AMLODIPINE BESYLATE
     Dosage: 10 MG, 1X/DAY
  3. UNSPECIFIED VITAMIN(S) [Concomitant]

REACTIONS (4)
  - Onychomadesis [Unknown]
  - Application site vesicles [Recovered/Resolved]
  - Onycholysis [Recovering/Resolving]
  - Purulent discharge [Recovering/Resolving]

NARRATIVE: CASE EVENT DATE: 2015
